FAERS Safety Report 19120575 (Version 1)
Quarter: 2021Q2

REPORT INFORMATION
  Report Type: Spontaneous
  Country: US (occurrence: US)
  Receive Date: 20210409
  Receipt Date: 20210409
  Transmission Date: 20210717
  Serious: Yes (Life-Threatening, Other)
  Sender: FDA-Public Use
  Company Number: None

PATIENT
  Age: 50 Year
  Sex: Female
  Weight: 63 kg

DRUGS (3)
  1. ALBUTEROL. [Concomitant]
     Active Substance: ALBUTEROL
  2. BENZODIAZEPINES [Concomitant]
     Active Substance: BENZODIAZEPINE
  3. THEOPHYLLINE [Suspect]
     Active Substance: THEOPHYLLINE ANHYDROUS
     Indication: ASTHMA
     Route: 048
     Dates: start: 20210409, end: 20210409

REACTIONS (4)
  - Disorientation [None]
  - Condition aggravated [None]
  - Product complaint [None]
  - Seizure [None]

NARRATIVE: CASE EVENT DATE: 20210409
